FAERS Safety Report 25366431 (Version 8)
Quarter: 2025Q4

REPORT INFORMATION
  Report Type: Spontaneous
  Country: EU (occurrence: EU)
  Receive Date: 20250528
  Receipt Date: 20251212
  Transmission Date: 20260118
  Serious: Yes (Death, Life-Threatening, Hospitalization, Other)
  Sender: AUROBINDO
  Company Number: EU-002147023-NVSC2025FR058462

PATIENT
  Sex: Female
  Weight: 83 kg

DRUGS (29)
  1. LETROZOLE [Suspect]
     Active Substance: LETROZOLE
     Indication: Intraductal proliferative breast lesion
     Dosage: 2.5 MILLIGRAM, ONCE A DAY(2.5 MG, QD (1 TABLET PER DAY))_
     Route: 065
     Dates: start: 20250326, end: 20250331
  2. LETROZOLE [Suspect]
     Active Substance: LETROZOLE
     Indication: Hormone therapy
  3. METFORMIN [Suspect]
     Active Substance: METFORMIN HYDROCHLORIDE
     Indication: Diabetes mellitus
     Dosage: 850 MILLIGRAM, 3 TIMES A DAY(2550)
  4. METFORMIN [Suspect]
     Active Substance: METFORMIN HYDROCHLORIDE
     Dosage: 2550 MILLIGRAM, ONCE A DAY
     Route: 065
  5. KISQALI [Suspect]
     Active Substance: RIBOCICLIB SUCCINATE
     Indication: Hormone receptor positive HER2 negative breast cancer
     Dosage: 600 MILLIGRAM, ONCE A DAY
     Dates: start: 20250326, end: 20250331
  6. KISQALI [Suspect]
     Active Substance: RIBOCICLIB SUCCINATE
     Indication: Intraductal proliferative breast lesion
  7. RIBOCICLIB [Suspect]
     Active Substance: RIBOCICLIB
     Indication: Hormone receptor positive HER2 negative breast cancer
     Dosage: 600 MILLIGRAM, ONCE A DAY(600 MG, QD)
     Dates: start: 20250326
  8. RIBOCICLIB [Suspect]
     Active Substance: RIBOCICLIB
     Indication: Intraductal proliferative breast lesion
  9. AMIKACIN SULFATE [Concomitant]
     Active Substance: AMIKACIN SULFATE
     Indication: Product used for unknown indication
     Dosage: UNK
     Route: 065
  10. MIDAZOLAM [Concomitant]
     Active Substance: MIDAZOLAM
     Indication: Product used for unknown indication
     Dosage: UNK
     Route: 065
  11. INSULIN NOS [Concomitant]
     Active Substance: INSULIN NOS
     Indication: Product used for unknown indication
     Dosage: UNK
     Route: 065
  12. NOREPINEPHRINE BITARTRATE [Concomitant]
     Active Substance: NOREPINEPHRINE BITARTRATE
     Indication: Product used for unknown indication
     Dosage: UNK
     Route: 065
  13. NOREPINEPHRINE BITARTRATE [Concomitant]
     Active Substance: NOREPINEPHRINE BITARTRATE
     Dosage: UNK (FAST INCREASE UP TO 20 MG/H)
     Route: 065
  14. SPIRAMYCIN [Concomitant]
     Active Substance: SPIRAMYCIN
     Indication: Respiratory tract infection
     Dosage: UNK
     Route: 065
  15. LETROZOLE [Concomitant]
     Active Substance: LETROZOLE
     Indication: Intraductal proliferative breast lesion
     Dosage: 2.5 MILLIGRAM, ONCE A DAY
     Dates: start: 20250326, end: 20250331
  16. LETROZOLE [Concomitant]
     Active Substance: LETROZOLE
     Indication: Hormone therapy
  17. LETROZOLE [Concomitant]
     Active Substance: LETROZOLE
     Indication: Breast cancer
  18. SPIRAMYCIN [Concomitant]
     Active Substance: SPIRAMYCIN
     Indication: Respiratory tract infection
     Dosage: UNK
     Route: 065
  19. AMIKACIN [Concomitant]
     Active Substance: AMIKACIN
     Indication: Product used for unknown indication
     Dosage: UNK
     Route: 065
  20. MIDAZOLAM HYDROCHLORIDE [Concomitant]
     Active Substance: MIDAZOLAM HYDROCHLORIDE
     Indication: Product used for unknown indication
     Dosage: UNK
     Route: 065
  21. OXAZEPAM [Concomitant]
     Active Substance: OXAZEPAM
     Indication: Anxiety
     Route: 065
  22. CHOLECALCIFEROL [Concomitant]
     Active Substance: CHOLECALCIFEROL
     Indication: Peptic ulcer
     Dosage: UNK, VIAL ORAL
     Route: 065
  23. OMEPRAZOLE [Concomitant]
     Active Substance: OMEPRAZOLE
     Indication: Peptic ulcer
     Dosage: 20 MILLIGRAM
  24. DAPAGLIFLOZIN [Concomitant]
     Active Substance: DAPAGLIFLOZIN
     Indication: Diabetes mellitus
     Dosage: 10 MILLIGRAM
     Route: 065
  25. FUROSEMIDE [Concomitant]
     Active Substance: FUROSEMIDE
     Indication: Hypertension
     Dosage: 40 MILLIGRAM
  26. IRBESARTAN [Concomitant]
     Active Substance: IRBESARTAN
     Indication: Hypertension
     Dosage: 150 MILLIGRAM
  27. KERLONE [Concomitant]
     Active Substance: BETAXOLOL HYDROCHLORIDE
     Indication: Hypertension
     Dosage: 20 MILLIGRAM
  28. Loxen [Concomitant]
     Indication: Blood pressure increased
     Dosage: 100 MILLIGRAM
  29. Loxen [Concomitant]
     Indication: Cardiac failure

REACTIONS (16)
  - Diabetic ketoacidosis [Fatal]
  - Hyperlactacidaemia [Fatal]
  - Dyspnoea [Fatal]
  - Death [Fatal]
  - Acute kidney injury [Fatal]
  - Metabolic acidosis [Fatal]
  - Multiple organ dysfunction syndrome [Unknown]
  - Gastrointestinal disorder [Fatal]
  - Diarrhoea [Fatal]
  - Nausea [Fatal]
  - Hypothermia [Fatal]
  - Vomiting [Fatal]
  - Hypotension [Fatal]
  - Toxicity to various agents [Unknown]
  - Acetonaemia [Unknown]
  - Dyspepsia [Unknown]

NARRATIVE: CASE EVENT DATE: 20250330
